FAERS Safety Report 23886145 (Version 1)
Quarter: 2024Q2

REPORT INFORMATION
  Report Type: Spontaneous
  Country: US (occurrence: US)
  Receive Date: 20240522
  Receipt Date: 20240522
  Transmission Date: 20240717
  Serious: No
  Sender: FDA-Public Use
  Company Number: US-BRISTOL-MYERS SQUIBB COMPANY-2024-078650

PATIENT
  Age: 51 Year
  Sex: Female
  Weight: 78.0 kg

DRUGS (1)
  1. LENALIDOMIDE [Suspect]
     Active Substance: LENALIDOMIDE
     Indication: Plasma cell myeloma in remission
     Dosage: FREQUENCY: DAILY ON DAYS 1-28 EVERY 28 DAYS
     Route: 048
     Dates: start: 20221129

REACTIONS (1)
  - Emergency care examination [Recovered/Resolved]

NARRATIVE: CASE EVENT DATE: 20240501
